FAERS Safety Report 20225827 (Version 2)
Quarter: 2021Q4

REPORT INFORMATION
  Report Type: Spontaneous
  Country: US (occurrence: US)
  Receive Date: 20211224
  Receipt Date: 20211228
  Transmission Date: 20220303
  Serious: Yes (Hospitalization)
  Sender: FDA-Public Use
  Company Number: US-CELGENE-USA-20211205826

PATIENT
  Sex: Female

DRUGS (2)
  1. REVLIMID [Suspect]
     Active Substance: LENALIDOMIDE
     Indication: 5q minus syndrome
     Dosage: 25 MILLIGRAM
     Route: 048
     Dates: start: 20211117
  2. ELIQUIS [Concomitant]
     Active Substance: APIXABAN
     Indication: Product used for unknown indication
     Route: 065

REACTIONS (4)
  - Pulmonary embolism [Unknown]
  - Rash [Unknown]
  - Peripheral swelling [Unknown]
  - Hypertension [Unknown]

NARRATIVE: CASE EVENT DATE: 20210101
